FAERS Safety Report 11695818 (Version 1)
Quarter: 2015Q4

REPORT INFORMATION
  Report Type: Spontaneous
  Country: JP (occurrence: JP)
  Receive Date: 20151104
  Receipt Date: 20151104
  Transmission Date: 20160304
  Serious: Yes (Other)
  Sender: FDA-Public Use
  Company Number: PHHY2015JP142996

PATIENT
  Age: 21 Month
  Sex: Male
  Weight: 8.49 kg

DRUGS (4)
  1. OCTREOTIDE. [Suspect]
     Active Substance: OCTREOTIDE
     Indication: PLEURAL EFFUSION
  2. OCTREOTIDE. [Suspect]
     Active Substance: OCTREOTIDE
     Indication: CHYLOTHORAX
     Dosage: 3 UG/KG, PER HOUR
     Route: 065
  3. MINOCYCLINE\MINOCYCLINE HYDROCHLORIDE [Suspect]
     Active Substance: MINOCYCLINE\MINOCYCLINE HYDROCHLORIDE
     Indication: PLEURAL EFFUSION
  4. MINOCYCLINE\MINOCYCLINE HYDROCHLORIDE [Suspect]
     Active Substance: MINOCYCLINE\MINOCYCLINE HYDROCHLORIDE
     Indication: CHYLOTHORAX
     Dosage: 2 MG/KG, QD
     Route: 065

REACTIONS (2)
  - Pleural effusion [Unknown]
  - Product use issue [Unknown]
